FAERS Safety Report 4955009-6 (Version None)
Quarter: 2006Q1

REPORT INFORMATION
  Report Type: 
  Country: None (occurrence: None)
  Receive Date: 20060322
  Receipt Date: 20060310
  Transmission Date: 20060701
  Serious: Yes (Hospitalization)
  Sender: FDA-Public Use
  Company Number: 200611423BWH

PATIENT
  Age: 71 Year
  Sex: Male

DRUGS (2)
  1. NEXAVAR [Suspect]
     Dosage: 200 MG, BID, ORAL
     Route: 048
     Dates: start: 20060101
  2. NEXAVAR [Suspect]
     Dosage: 200 MG, BID, ORAL
     Route: 048
     Dates: start: 20060221

REACTIONS (2)
  - DYSPNOEA [None]
  - HEART RATE IRREGULAR [None]
